FAERS Safety Report 5238003-X (Version None)
Quarter: 2007Q1

REPORT INFORMATION
  Report Type: 
  Country: None (occurrence: None)
  Receive Date: 20070214
  Receipt Date: 20070202
  Transmission Date: 20070707
  Serious: Yes (Hospitalization)
  Sender: FDA-Public Use
  Company Number: PE-PFIZER INC-2007007178

PATIENT
  Sex: Male
  Weight: 66 kg

DRUGS (1)
  1. SU-011,248 [Suspect]
     Indication: RENAL CANCER METASTATIC
     Route: 048

REACTIONS (1)
  - CELLULITIS [None]
